FAERS Safety Report 8597826-X (Version None)
Quarter: 2012Q3

REPORT INFORMATION
  Report Type: 
  Country: None (occurrence: None)
  Receive Date: 20120816
  Receipt Date: 20120813
  Transmission Date: 20120928
  Serious: Yes (Other)
  Sender: FDA-Public Use
  Company Number: PHHY2012DE070242

PATIENT
  Age: 45 Year
  Sex: Female

DRUGS (1)
  1. CLOZAPINE [Suspect]
     Indication: HALLUCINATION
     Dosage: 250 MG, (50MG MANE 200MG NOCTE) DAILY
     Route: 048

REACTIONS (1)
  - OCULOGYRIC CRISIS [None]
